FAERS Safety Report 9918994 (Version 1)
Quarter: 2014Q1

REPORT INFORMATION
  Report Type: Spontaneous
  Country: US (occurrence: US)
  Receive Date: 20140224
  Receipt Date: 20140224
  Transmission Date: 20141002
  Serious: No
  Sender: FDA-Public Use
  Company Number: US-BRISTOL-MYERS SQUIBB COMPANY-17393059

PATIENT
  Age: 66 Year
  Sex: Female

DRUGS (14)
  1. GLUCOPHAGE [Suspect]
  2. GABAPENTIN [Concomitant]
     Dosage: CAPS
     Route: 048
  3. LYRICA [Concomitant]
     Dosage: CAPS
     Route: 048
  4. DILAUDID [Concomitant]
     Dosage: EVERY 4-6 HRS
     Route: 048
  5. FOLIC ACID [Concomitant]
     Route: 048
  6. FERROUS [Concomitant]
  7. FUROSEMIDE [Concomitant]
     Route: 048
  8. CELLCEPT [Concomitant]
     Dosage: TAKE 6 CAPS
  9. CRESTOR [Concomitant]
     Dosage: TABS
     Route: 048
  10. PLAVIX [Concomitant]
     Route: 048
  11. GLYBURIDE [Concomitant]
     Route: 048
  12. LANTUS [Concomitant]
  13. SYNTHROID [Concomitant]
  14. NIFEDIPINE [Concomitant]

REACTIONS (1)
  - Hypersensitivity [Unknown]
